FAERS Safety Report 6262627-4 (Version None)
Quarter: 2009Q3

REPORT INFORMATION
  Report Type: 
  Country: None (occurrence: None)
  Receive Date: 20090709
  Receipt Date: 20090706
  Transmission Date: 20100115
  Serious: Yes (Hospitalization)
  Sender: FDA-Public Use
  Company Number: US-AVENTIS-200915815US

PATIENT
  Age: 68 Year
  Sex: Female

DRUGS (9)
  1. LOVENOX [Suspect]
     Indication: FACTOR V LEIDEN MUTATION
     Dosage: DOSE: UNK
     Dates: start: 20070101
  2. LOVENOX [Suspect]
  3. LEVOTHYROXINE SODIUM [Concomitant]
     Indication: HYPOTHYROIDISM
     Dosage: DOSE: UNK
  4. DRUG USED IN DIABETES [Concomitant]
     Dosage: DOSE: UNK
  5. FENOFIBRATE [Concomitant]
     Dosage: DOSE: UNK
  6. LASIX [Concomitant]
     Dosage: DOSE: UNK
  7. POTASSIUM CHLORIDE [Concomitant]
     Dosage: DOSE: UNK
  8. NEURONTIN [Concomitant]
     Dosage: DOSE: UNK
  9. CARDIOVASCULAR SYSTEM DRUGS [Concomitant]
     Dosage: DOSE: UNK

REACTIONS (6)
  - ARRHYTHMIA [None]
  - BALANCE DISORDER [None]
  - CARDIAC PACEMAKER INSERTION [None]
  - CHEST PAIN [None]
  - DYSPNOEA [None]
  - HEART RATE INCREASED [None]
